FAERS Safety Report 6883906-3 (Version None)
Quarter: 2010Q3

REPORT INFORMATION
  Report Type: 
  Country: None (occurrence: None)
  Receive Date: 20100729
  Receipt Date: 20100717
  Transmission Date: 20110219
  Serious: Yes (Hospitalization)
  Sender: FDA-Public Use
  Company Number: JP-BRISTOL-MYERS SQUIBB COMPANY-15196264

PATIENT
  Age: 46 Year
  Sex: Male

DRUGS (2)
  1. SAXAGLIPTIN [Suspect]
     Indication: TYPE 2 DIABETES MELLITUS
     Dosage: FORMULATION:TABLET;TAKEN TILL 13JUL10(159D)
     Route: 048
     Dates: start: 20100205
  2. NABOAL [Concomitant]
     Dosage: 1% GEL

REACTIONS (1)
  - CHEST PAIN [None]
